FAERS Safety Report 19926460 (Version 2)
Quarter: 2022Q4

REPORT INFORMATION
  Report Type: Report from Study
  Country: US (occurrence: US)
  Receive Date: 20211006
  Receipt Date: 20221031
  Transmission Date: 20230113
  Serious: Yes (Other)
  Sender: FDA-Public Use
  Company Number: US-TAKEDA-US201838835

PATIENT
  Age: 59 Year
  Sex: Female
  Weight: 60.68 kg

DRUGS (37)
  1. PARATHYROID HORMONE [Suspect]
     Active Substance: PARATHYROID HORMONE
     Indication: Hypoparathyroidism
     Dosage: 50 MICROGRAM, QD
     Route: 065
     Dates: start: 20160709, end: 20180617
  2. PARATHYROID HORMONE [Suspect]
     Active Substance: PARATHYROID HORMONE
     Indication: Hypoparathyroidism
     Dosage: 50 MICROGRAM, QD
     Route: 065
     Dates: start: 20160709, end: 20180617
  3. PARATHYROID HORMONE [Suspect]
     Active Substance: PARATHYROID HORMONE
     Indication: Hypoparathyroidism
     Dosage: 50 MICROGRAM, QD
     Route: 065
     Dates: start: 20160709, end: 20180617
  4. PARATHYROID HORMONE [Suspect]
     Active Substance: PARATHYROID HORMONE
     Dosage: 75 MICROGRAM, QD
     Route: 065
     Dates: start: 20180618, end: 20190823
  5. PARATHYROID HORMONE [Suspect]
     Active Substance: PARATHYROID HORMONE
     Dosage: 75 MICROGRAM, QD
     Route: 065
     Dates: start: 20180618, end: 20190823
  6. PARATHYROID HORMONE [Suspect]
     Active Substance: PARATHYROID HORMONE
     Dosage: 75 MICROGRAM, QD
     Route: 065
     Dates: start: 20180618, end: 20190823
  7. PARATHYROID HORMONE [Suspect]
     Active Substance: PARATHYROID HORMONE
     Dosage: 100 MICROGRAM, QD
     Route: 065
     Dates: start: 20190824, end: 20190916
  8. PARATHYROID HORMONE [Suspect]
     Active Substance: PARATHYROID HORMONE
     Dosage: 100 MICROGRAM, QD
     Route: 065
     Dates: start: 20190824, end: 20190916
  9. PARATHYROID HORMONE [Suspect]
     Active Substance: PARATHYROID HORMONE
     Dosage: 100 MICROGRAM, QD
     Route: 065
     Dates: start: 20190824, end: 20190916
  10. LEVOTHYROXINE [Concomitant]
     Active Substance: LEVOTHYROXINE
     Indication: Hypothyroidism
     Dosage: UNK
     Route: 048
     Dates: start: 19700301
  11. TRYPTOPHAN [Concomitant]
     Active Substance: TRYPTOPHAN
     Indication: Product used for unknown indication
     Dosage: UNK
     Route: 065
     Dates: start: 2010, end: 2019
  12. ZINC [Concomitant]
     Active Substance: ZINC
     Indication: Vitamin supplementation
     Dosage: UNK
     Dates: start: 2010, end: 2019
  13. ZINC [Concomitant]
     Active Substance: ZINC
     Indication: Nasal congestion
     Dosage: UNK
     Route: 048
     Dates: start: 20220812
  14. LUTEIN [Concomitant]
     Active Substance: LUTEIN
     Indication: Product used for unknown indication
     Dosage: UNK
     Dates: start: 2010, end: 2019
  15. MAGNESIUM [Concomitant]
     Active Substance: MAGNESIUM
     Indication: Hypomagnesaemia
  16. FOLIC ACID [Concomitant]
     Active Substance: FOLIC ACID
     Indication: Vitamin supplementation
     Dosage: UNK
     Route: 048
     Dates: start: 2010, end: 2019
  17. RIFAXIMIN [Concomitant]
     Active Substance: RIFAXIMIN
     Indication: Irritable bowel syndrome
     Dosage: UNK
     Route: 048
     Dates: start: 201608, end: 201608
  18. RALOXIFENE [Concomitant]
     Active Substance: RALOXIFENE
     Indication: Breast cancer
     Dosage: UNK
     Route: 048
     Dates: start: 201708, end: 202001
  19. BERBERINE [Concomitant]
     Active Substance: BERBERINE
     Indication: Gastrointestinal bacterial overgrowth
     Dosage: UNK
     Route: 048
     Dates: start: 201801, end: 2019
  20. L-glutamine [Concomitant]
     Indication: Gastrointestinal bacterial overgrowth
     Dosage: UNK
     Route: 048
     Dates: start: 201801, end: 2018
  21. XYLOMETAZOLINE HYDROCHLORIDE [Concomitant]
     Active Substance: XYLOMETAZOLINE HYDROCHLORIDE
     Indication: Multiple allergies
     Dosage: UNK
     Route: 048
     Dates: start: 20200110, end: 202003
  22. CHLORHEXIDINE GLUCONATE [Concomitant]
     Active Substance: CHLORHEXIDINE GLUCONATE
     Indication: Mouth ulceration
     Dosage: UNK
     Route: 061
     Dates: start: 20200511
  23. DICLOFENAC [Concomitant]
     Active Substance: DICLOFENAC
     Indication: Arthritis
     Dosage: UNK
     Route: 061
     Dates: start: 20200511, end: 2022
  24. B vitamin comp [Concomitant]
     Dosage: UNK
     Route: 048
     Dates: start: 2016
  25. LINZESS [Concomitant]
     Active Substance: LINACLOTIDE
     Indication: Irritable bowel syndrome
     Dosage: UNK
     Route: 048
     Dates: start: 20200709, end: 20200720
  26. RALOXIFENE [Concomitant]
     Active Substance: RALOXIFENE
     Indication: Prophylaxis
     Dosage: UNK
     Route: 048
     Dates: start: 202012, end: 202102
  27. FAMOTIDINE [Concomitant]
     Active Substance: FAMOTIDINE
     Indication: Gastritis
     Dosage: UNK
     Route: 048
     Dates: start: 202012, end: 2021
  28. ALLOPURINOL [Concomitant]
     Active Substance: ALLOPURINOL
     Indication: Gout
     Dosage: UNK
     Route: 048
     Dates: start: 202105, end: 202106
  29. ALLOPURINOL [Concomitant]
     Active Substance: ALLOPURINOL
     Dosage: UNK
     Route: 048
     Dates: start: 20211116, end: 202206
  30. MOTEGRITY [Concomitant]
     Active Substance: PRUCALOPRIDE SUCCINATE
     Indication: Irritable bowel syndrome
     Dosage: UNK
     Route: 048
     Dates: start: 202107, end: 202207
  31. ZITHROMAX [Concomitant]
     Active Substance: AZITHROMYCIN DIHYDRATE
     Indication: Sinusitis
     Dosage: UNK
     Route: 048
     Dates: start: 20220315, end: 20220320
  32. ANUCORT-HC [Concomitant]
     Active Substance: HYDROCORTISONE ACETATE
     Indication: Haemorrhoids
     Dosage: UNK
     Route: 061
     Dates: start: 202206, end: 202207
  33. ANUCORT-HC [Concomitant]
     Active Substance: HYDROCORTISONE ACETATE
     Indication: Anal fissure
  34. PLAQUENIL [Concomitant]
     Active Substance: HYDROXYCHLOROQUINE SULFATE
     Indication: Arthralgia
     Dosage: UNK
     Route: 048
     Dates: start: 20220520
  35. VITAMIN C [Concomitant]
     Active Substance: ASCORBIC ACID
     Indication: Nasal congestion
     Dosage: UNK
     Route: 048
     Dates: start: 20220812
  36. HERBALS [Concomitant]
     Active Substance: HERBALS
     Indication: Nasal congestion
     Dosage: UNK
     Route: 048
     Dates: start: 20220812
  37. POTASSIUM BICARBONATE [Concomitant]
     Active Substance: POTASSIUM BICARBONATE
     Indication: Nasal congestion
     Dosage: UNK
     Route: 048
     Dates: start: 20220812, end: 202208

REACTIONS (1)
  - Breast cancer [Recovering/Resolving]

NARRATIVE: CASE EVENT DATE: 20170701
